FAERS Safety Report 7177177-0 (Version None)
Quarter: 2010Q4

REPORT INFORMATION
  Report Type: 
  Country: None (occurrence: None)
  Receive Date: 20101220
  Receipt Date: 20101213
  Transmission Date: 20110411
  Serious: Yes (Other)
  Sender: FDA-Public Use
  Company Number: GB-ROCHE-649479

PATIENT

DRUGS (4)
  1. CEFTRIAXONE SODIUM [Suspect]
     Route: 065
  2. METFORMIN HCL [Suspect]
     Route: 065
  3. CALCITRIOL [Suspect]
     Route: 065
  4. MYCOPHENOLATE MOFETIL [Suspect]
     Dosage: DRUG: MYCOPHENOLATE
     Route: 065

REACTIONS (9)
  - CANDIDIASIS [None]
  - CLOSTRIDIAL INFECTION [None]
  - ELECTROLYTE IMBALANCE [None]
  - HAEMORRHAGE [None]
  - INTERNATIONAL NORMALISED RATIO INCREASED [None]
  - NAUSEA [None]
  - NEUTROPENIA [None]
  - RASH [None]
  - RENAL IMPAIRMENT [None]
